FAERS Safety Report 7989505-4 (Version None)
Quarter: 2011Q4

REPORT INFORMATION
  Report Type: 
  Country: None (occurrence: None)
  Receive Date: 20111219
  Receipt Date: 20110526
  Transmission Date: 20120403
  Serious: No
  Sender: FDA-Public Use
  Company Number: US-ASTRAZENECA-2011SE33011

PATIENT
  Age: 70 Year
  Sex: Female
  Weight: 74.8 kg

DRUGS (6)
  1. DICOLENCK [Concomitant]
     Indication: ARTHRITIS
  2. ADVAIR DISKUS 100/50 [Concomitant]
     Indication: CHRONIC OBSTRUCTIVE PULMONARY DISEASE
  3. MAVIK [Concomitant]
     Indication: BLOOD PRESSURE
  4. SPIRIVA [Concomitant]
     Indication: CHRONIC OBSTRUCTIVE PULMONARY DISEASE
  5. HYDROCHLOROTHIAZIDE [Concomitant]
     Indication: BLOOD PRESSURE
  6. CRESTOR [Suspect]
     Route: 048

REACTIONS (1)
  - DYSPHONIA [None]
